FAERS Safety Report 14401298 (Version 3)
Quarter: 2018Q2

REPORT INFORMATION
  Report Type: Spontaneous
  Country: US (occurrence: US)
  Receive Date: 20180117
  Receipt Date: 20180507
  Transmission Date: 20180711
  Serious: Yes (Other)
  Sender: FDA-Public Use
  Company Number: US-PFIZER INC-2018020643

PATIENT

DRUGS (1)
  1. EFFEXOR XR [Suspect]
     Active Substance: VENLAFAXINE HYDROCHLORIDE
     Dosage: UNK

REACTIONS (8)
  - Feeling abnormal [Unknown]
  - Apparent death [Unknown]
  - Depression [Unknown]
  - Influenza like illness [Unknown]
  - Anxiety [Unknown]
  - Paraesthesia [Unknown]
  - Abdominal discomfort [Unknown]
  - Withdrawal syndrome [Unknown]
